FAERS Safety Report 4923530-2 (Version None)
Quarter: 2006Q1

REPORT INFORMATION
  Report Type: 
  Country: None (occurrence: None)
  Receive Date: 20060227
  Receipt Date: 20060216
  Transmission Date: 20060701
  Serious: Yes (Disabling)
  Sender: FDA-Public Use
  Company Number: PHRM2006FR00838

PATIENT
  Age: 68 Year
  Sex: Male

DRUGS (2)
  1. ZOMETA [Suspect]
     Dosage: 4 MG, QMO
     Route: 042
     Dates: start: 20030701, end: 20051213
  2. AREDIA [Suspect]
     Dosage: 1 DF, QMO
     Route: 042
     Dates: start: 20020101, end: 20030630

REACTIONS (1)
  - OSTEONECROSIS [None]
